FAERS Safety Report 19999278 (Version 1)
Quarter: 2021Q4

REPORT INFORMATION
  Report Type: Spontaneous
  Country: GB (occurrence: GB)
  Receive Date: 20211026
  Receipt Date: 20211026
  Transmission Date: 20220303
  Serious: Yes (Life-Threatening, Hospitalization)
  Sender: FDA-Public Use
  Company Number: 2021A782359

PATIENT
  Age: 74 Year
  Sex: Male

DRUGS (3)
  1. DAPAGLIFLOZIN PROPANEDIOL [Suspect]
     Active Substance: DAPAGLIFLOZIN PROPANEDIOL
     Indication: Type 2 diabetes mellitus
     Dosage: 10 MG UNKNOWN FREQUENCY
     Route: 048
     Dates: end: 20210921
  2. INSULIN NOS [Concomitant]
     Active Substance: INSULIN NOS
     Indication: Ill-defined disorder
     Dosage: UNKNOWN
     Route: 065
  3. LINAGLIPTIN [Concomitant]
     Active Substance: LINAGLIPTIN
     Indication: Ill-defined disorder
     Dosage: UNKNOWN
     Route: 065

REACTIONS (1)
  - Peripheral ischaemia [Recovered/Resolved with Sequelae]

NARRATIVE: CASE EVENT DATE: 20210926
